FAERS Safety Report 18966928 (Version 2)
Quarter: 2021Q2

REPORT INFORMATION
  Report Type: Report from Study
  Country: CA (occurrence: CA)
  Receive Date: 20210303
  Receipt Date: 20210401
  Transmission Date: 20210717
  Serious: Yes (Other)
  Sender: FDA-Public Use
  Company Number: CA-NALPROPION PHARMACEUTICALS INC.-2021-012368

PATIENT

DRUGS (4)
  1. CONTRAVE [Suspect]
     Active Substance: BUPROPION HYDROCHLORIDE\NALTREXONE HYDROCHLORIDE
     Dosage: STRENGTH: 90/8MG, FREQUENCY: 1 TABLET IN THE MORNING, 1 TABLET IN EVENING
     Route: 048
     Dates: start: 20210207, end: 20210213
  2. CONTRAVE [Suspect]
     Active Substance: BUPROPION HYDROCHLORIDE\NALTREXONE HYDROCHLORIDE
     Dosage: STRENGTH: 90/8MG, FREQUENCY: 2 TABLETS IN THE MORNING, 2 TABLETS IN EVENING
     Route: 048
     Dates: start: 20210221
  3. CONTRAVE [Suspect]
     Active Substance: BUPROPION HYDROCHLORIDE\NALTREXONE HYDROCHLORIDE
     Dosage: STRENGTH: 90/8MG, FREQUENCY: 2 TABLET IN THE MORNING, 1 TABLET IN EVENING
     Route: 048
     Dates: start: 20210214, end: 20210220
  4. CONTRAVE [Suspect]
     Active Substance: BUPROPION HYDROCHLORIDE\NALTREXONE HYDROCHLORIDE
     Indication: WEIGHT CONTROL
     Dosage: STRENGTH: 90/8MG, FREQUENCY: 1 TABLET IN THE MORNING
     Route: 048
     Dates: start: 20210131, end: 20210206

REACTIONS (7)
  - Constipation [Recovered/Resolved]
  - Blood glucose decreased [Unknown]
  - Abnormal dreams [Unknown]
  - Arteriosclerosis coronary artery [Unknown]
  - Nausea [Recovered/Resolved]
  - Product dose omission in error [Unknown]
  - Tremor [Recovered/Resolved]

NARRATIVE: CASE EVENT DATE: 20210218
